FAERS Safety Report 12139397 (Version 1)
Quarter: 2016Q1

REPORT INFORMATION
  Report Type: Spontaneous
  Country: US (occurrence: US)
  Receive Date: 20160303
  Receipt Date: 20160303
  Transmission Date: 20160526
  Serious: Yes (Other)
  Sender: FDA-Public Use
  Company Number: US-AMGEN-USASP2016024353

PATIENT
  Age: 62 Year
  Sex: Female
  Weight: 96.16 kg

DRUGS (35)
  1. VITAMIN D3 [Concomitant]
     Active Substance: CHOLECALCIFEROL
     Dosage: 1000 UNIT, QD
     Route: 048
  2. TDAP IPV [Concomitant]
     Active Substance: DIPHTHERIA AND TETANUS TOXOIDS AND ACELLULAR PERTUSSIS ADSORBED AND INACTIVATED POLIOVIRUS VACCINE
     Dosage: 0.5 ML, UNK
     Route: 030
     Dates: start: 20150712
  3. NEURONTIN [Concomitant]
     Active Substance: GABAPENTIN
     Dosage: 600 MG, QID
     Route: 048
  4. SINGULAIR [Concomitant]
     Active Substance: MONTELUKAST SODIUM
     Dosage: 10 MG, QD
     Route: 048
  5. DENAVIR [Concomitant]
     Active Substance: PENCICLOVIR
     Dosage: 1 %, QD
     Route: 061
     Dates: start: 20141113
  6. ENBREL [Suspect]
     Active Substance: ETANERCEPT
     Indication: RHEUMATOID ARTHRITIS
     Dosage: UNK
     Route: 065
  7. XANAX [Concomitant]
     Active Substance: ALPRAZOLAM
     Dosage: 0.5 MG, TWICE DAILY AS NECESSARY
     Route: 048
     Dates: start: 20140724
  8. PLAQUENIL [Concomitant]
     Active Substance: HYDROXYCHLOROQUINE SULFATE
     Dosage: 200 MG, TWO TABLETS QD
     Route: 048
     Dates: start: 20151012
  9. VALTREX [Concomitant]
     Active Substance: VALACYCLOVIR HYDROCHLORIDE
     Dosage: 500 MG, DAILY AS NECESSARY
     Route: 048
  10. TOFACITINIB [Concomitant]
     Active Substance: TOFACITINIB
     Dosage: 5 MG, BID
     Route: 048
     Dates: start: 20160112
  11. ZOFRAN [Concomitant]
     Active Substance: ONDANSETRON HYDROCHLORIDE
     Indication: NAUSEA
     Dosage: 4 MG, EVERY 8 HOURS AS NECESSARY
     Route: 048
     Dates: start: 20141117
  12. PROTONIX [Concomitant]
     Active Substance: PANTOPRAZOLE SODIUM
     Dosage: 40 MG, QD
     Route: 048
  13. ZOLOFT [Concomitant]
     Active Substance: SERTRALINE HYDROCHLORIDE
     Dosage: 50 MG, BID
     Route: 048
  14. NORCO [Concomitant]
     Active Substance: ACETAMINOPHEN\HYDROCODONE BITARTRATE
     Dosage: 10 MG, 4 TO 6 HOURS AS NECESSARY
  15. SAVELLA [Concomitant]
     Active Substance: MILNACIPRAN HYDROCHLORIDE
     Dosage: UNK
  16. LASIX [Concomitant]
     Active Substance: FUROSEMIDE
     Dosage: 40 MG, QD
     Route: 048
  17. PLAQUENIL [Concomitant]
     Active Substance: HYDROXYCHLOROQUINE SULFATE
     Dosage: 400 MG, TWO TABLETS QD
     Route: 048
     Dates: start: 201112
  18. ZESTRIL [Concomitant]
     Active Substance: LISINOPRIL
     Dosage: 20 MG, QD
     Route: 048
  19. DULERA [Concomitant]
     Active Substance: FORMOTEROL FUMARATE DIHYDRATE\MOMETASONE FUROATE
     Dosage: 200-5 MCG, BID
  20. CRESTOR [Concomitant]
     Active Substance: ROSUVASTATIN CALCIUM
     Dosage: 20 MG, QD
     Route: 048
  21. RITUXAN [Concomitant]
     Active Substance: RITUXIMAB
     Dosage: UNK
     Dates: start: 20120921, end: 20140213
  22. PRADAXA [Concomitant]
     Active Substance: DABIGATRAN ETEXILATE MESYLATE
     Dosage: 150 MG, BID
     Route: 048
  23. PRINIVIL [Concomitant]
     Active Substance: LISINOPRIL
     Dosage: 20 MG, QD
     Route: 048
  24. XELJANZ [Concomitant]
     Active Substance: TOFACITINIB CITRATE
     Dosage: 5 MG, BID
     Route: 048
  25. ENBREL [Suspect]
     Active Substance: ETANERCEPT
     Indication: PSORIASIS
  26. ASPIRIN                            /00002701/ [Concomitant]
     Active Substance: ASPIRIN
     Dosage: 81 MG, QD
     Route: 048
  27. VITAMIN B12 [Concomitant]
     Active Substance: CYANOCOBALAMIN
     Dosage: 1000 MUG, QD
     Route: 048
  28. NASACORT AQ [Concomitant]
     Active Substance: TRIAMCINOLONE ACETONIDE
     Dosage: 55 MUG, QD
     Route: 045
     Dates: start: 20141113
  29. PROAIR HFA [Concomitant]
     Active Substance: ALBUTEROL SULFATE
     Dosage: 90 MUG, EVERY 4 HOURS AS NECESSARY
  30. TEMOVATE [Concomitant]
     Active Substance: CLOBETASOL PROPIONATE
     Dosage: 0.05 %, BID
     Route: 061
  31. PERCOCET                           /00446701/ [Concomitant]
     Active Substance: ACETAMINOPHEN\OXYCODONE HYDROCHLORIDE\OXYCODONE TEREPHTHALATE
     Dosage: 5-325 MG EVERY SIX, AS NECESSARY
     Route: 048
     Dates: start: 20151105
  32. MILNACIPRAN [Concomitant]
     Active Substance: MILNACIPRAN
     Dosage: 100 MG, BID
     Route: 048
     Dates: start: 20140410, end: 20160112
  33. DELTASONE [Concomitant]
     Active Substance: PREDNISONE
     Dosage: 10 MG, QD
     Route: 048
     Dates: start: 20151013, end: 20160112
  34. HUMIRA [Concomitant]
     Active Substance: ADALIMUMAB
     Dosage: UNK
  35. PNEUMOCOCCAL POLYSACCHARIDE VACCINE [Concomitant]
     Active Substance: PNEUMOCOCCAL VACCINE POLYVALENT
     Dosage: 0.5 ML, UNK
     Route: 058
     Dates: start: 20120808

REACTIONS (71)
  - Haemorrhagic diathesis [Unknown]
  - Spinal operation [Unknown]
  - Hepatitis [Unknown]
  - Mitral valve prolapse [Unknown]
  - Osteoarthritis [Unknown]
  - Gastrooesophageal reflux disease [Unknown]
  - Fibromyalgia [Unknown]
  - Anxiety [Unknown]
  - Psoriasis [Unknown]
  - Deep vein thrombosis [Unknown]
  - Osteoporosis [Unknown]
  - Peripheral swelling [Not Recovered/Not Resolved]
  - Animal scratch [Unknown]
  - Lymphocytic infiltration [Unknown]
  - Hypertension [Unknown]
  - Rash [Unknown]
  - Musculoskeletal pain [Recovering/Resolving]
  - Pain in extremity [Not Recovered/Not Resolved]
  - Musculoskeletal stiffness [Recovering/Resolving]
  - Periarthritis [Unknown]
  - Lumbar spinal stenosis [Unknown]
  - Vitamin D deficiency [Unknown]
  - Muscle spasms [Unknown]
  - Fatigue [Unknown]
  - Raynaud^s phenomenon [Recovered/Resolved]
  - Osteopenia [Unknown]
  - Neuropathy peripheral [Unknown]
  - Pulmonary embolism [Unknown]
  - Barrett^s oesophagus [Unknown]
  - Haematochezia [Unknown]
  - Tumour excision [Unknown]
  - Spinal laminectomy [Unknown]
  - Arthralgia [Not Recovered/Not Resolved]
  - Depression [Unknown]
  - Activated partial thromboplastin time prolonged [Unknown]
  - Hyperlipidaemia [Unknown]
  - Carotid artery stenosis [Unknown]
  - Peptic ulcer [Unknown]
  - Rheumatic fever [Unknown]
  - Cholecystectomy [Unknown]
  - Hip arthroplasty [Unknown]
  - Bursitis [Unknown]
  - Anaemia vitamin B12 deficiency [Unknown]
  - Sacroiliitis [Unknown]
  - Skin discolouration [Unknown]
  - Chronic obstructive pulmonary disease [Unknown]
  - Asthma [Unknown]
  - Pain [Unknown]
  - Insomnia [Unknown]
  - Shoulder arthroplasty [Unknown]
  - Cerebrovascular accident [Unknown]
  - Scar [Unknown]
  - Livedo reticularis [Unknown]
  - Back pain [Unknown]
  - Chest pain [Unknown]
  - Gastrointestinal haemorrhage [Unknown]
  - Humerus fracture [Unknown]
  - Hysterectomy [Unknown]
  - Sleep apnoea syndrome [Unknown]
  - Haematuria [Unknown]
  - Intervertebral disc degeneration [Unknown]
  - Joint effusion [Unknown]
  - Walking aid user [Unknown]
  - Thrombocytopenia [Unknown]
  - Antiphospholipid syndrome [Unknown]
  - Mitral valve incompetence [Unknown]
  - Upper limb fracture [Unknown]
  - Emphysema [Unknown]
  - Rotator cuff syndrome [Unknown]
  - Herpes zoster [Unknown]
  - Drug ineffective [Unknown]

NARRATIVE: CASE EVENT DATE: 2010
